FAERS Safety Report 5150987-7 (Version None)
Quarter: 2006Q4

REPORT INFORMATION
  Report Type: 
  Country: None (occurrence: None)
  Receive Date: 20061108
  Receipt Date: 20061026
  Transmission Date: 20070319
  Serious: Yes (Other)
  Sender: FDA-Public Use
  Company Number: 2006132980

PATIENT
  Age: 16 Year
  Sex: Male

DRUGS (2)
  1. UNACID INJECTION (SULBACTAM, AMPICILLIN) [Suspect]
     Indication: PNEUMONIA
     Dosage: 4 GRAM (2 GRAM, 2 IN 1 D), INTRAVENOUS
     Route: 042
  2. PHENYTOIN [Suspect]
     Indication: EPILEPSY

REACTIONS (4)
  - ANTICONVULSANT DRUG LEVEL DECREASED [None]
  - CONDITION AGGRAVATED [None]
  - CONVULSION [None]
  - DRUG INTERACTION [None]
